FAERS Safety Report 8810803 (Version 2)
Quarter: 2015Q1

REPORT INFORMATION
  Report Type: Report from Study
  Country: CA (occurrence: CA)
  Receive Date: 20120927
  Receipt Date: 20150203
  Transmission Date: 20150721
  Serious: Yes (Hospitalization)
  Sender: FDA-Public Use
  Company Number: CA-JNJFOC-20120908152

PATIENT
  Age: 59 Year
  Sex: Female
  Weight: 58 kg

DRUGS (4)
  1. REMICADE [Suspect]
     Active Substance: INFLIXIMAB
     Indication: CROHN^S DISEASE
     Dosage: 14-NOV-2012 (REPORTED FUTURE DATE)
     Route: 042
     Dates: start: 200912, end: 201301
  2. ACLASTA [Concomitant]
     Active Substance: ZOLEDRONIC ACID
     Route: 065
  3. PREDNISONE. [Concomitant]
     Active Substance: PREDNISONE
     Route: 065
  4. SYNTHROID [Concomitant]
     Active Substance: LEVOTHYROXINE SODIUM
     Route: 065

REACTIONS (3)
  - Bronchitis [Unknown]
  - Gastrointestinal infection [Recovered/Resolved]
  - Large intestine perforation [Recovering/Resolving]

NARRATIVE: CASE EVENT DATE: 2012
